FAERS Safety Report 11822933 (Version 2)
Quarter: 2015Q4

REPORT INFORMATION
  Report Type: Spontaneous
  Country: BR (occurrence: BR)
  Receive Date: 20151210
  Receipt Date: 20151211
  Transmission Date: 20160305
  Serious: Yes (Other)
  Sender: FDA-Public Use
  Company Number: BR-IGSA-IG003719

PATIENT
  Age: 32 Year
  Sex: Female
  Weight: 50 kg

DRUGS (1)
  1. FLEBOGAMMA DIF [Suspect]
     Active Substance: HUMAN IMMUNOGLOBULIN G
     Indication: IMMUNODEFICIENCY COMMON VARIABLE
     Route: 042
     Dates: start: 20151113, end: 20151113

REACTIONS (9)
  - Unresponsive to stimuli [Recovered/Resolved]
  - Fatigue [Not Recovered/Not Resolved]
  - Pain [Unknown]
  - Diarrhoea [Unknown]
  - Restlessness [Unknown]
  - Sudden onset of sleep [Recovered/Resolved]
  - Head discomfort [Not Recovered/Not Resolved]
  - Haematuria [Unknown]
  - Amnesia [Unknown]

NARRATIVE: CASE EVENT DATE: 20151113
